FAERS Safety Report 22155176 (Version 3)
Quarter: 2023Q4

REPORT INFORMATION
  Report Type: Spontaneous
  Country: JP (occurrence: JP)
  Receive Date: 20230330
  Receipt Date: 20231122
  Transmission Date: 20240110
  Serious: Yes (Death, Other)
  Sender: FDA-Public Use
  Company Number: JP-BRISTOL-MYERS SQUIBB COMPANY-2022-116688

PATIENT
  Age: 62 Year
  Sex: Male

DRUGS (10)
  1. YERVOY [Suspect]
     Active Substance: IPILIMUMAB
     Indication: Non-small cell lung cancer
     Dosage: 1CD1
     Route: 041
     Dates: start: 20210610
  2. YERVOY [Suspect]
     Active Substance: IPILIMUMAB
     Dosage: 2CD1
     Route: 041
     Dates: start: 20210729
  3. YERVOY [Suspect]
     Active Substance: IPILIMUMAB
     Dosage: 3CD1
     Route: 041
     Dates: start: 20210909
  4. YERVOY [Suspect]
     Active Substance: IPILIMUMAB
     Dosage: 16CD1
     Route: 041
     Dates: start: 20230323
  5. OPDIVO [Suspect]
     Active Substance: NIVOLUMAB
     Indication: Non-small cell lung cancer
     Dosage: 1CD1
     Dates: start: 20210610
  6. OPDIVO [Suspect]
     Active Substance: NIVOLUMAB
     Dosage: 2CD1
     Dates: start: 20210729
  7. OPDIVO [Suspect]
     Active Substance: NIVOLUMAB
     Dosage: 3CD1
     Dates: start: 20210909
  8. OPDIVO [Suspect]
     Active Substance: NIVOLUMAB
     Dosage: 16CD1
     Dates: start: 20230323
  9. CARBOPLATIN [Suspect]
     Active Substance: CARBOPLATIN
     Indication: Non-small cell lung cancer
     Dosage: 1CD1
     Dates: start: 20210610
  10. PACLITAXEL [Suspect]
     Active Substance: PACLITAXEL
     Indication: Non-small cell lung cancer
     Dosage: 1CD1
     Dates: start: 20210610

REACTIONS (5)
  - Rash [Unknown]
  - Atrial fibrillation [Unknown]
  - Cardiac failure acute [Unknown]
  - Fatigue [Unknown]
  - Coronavirus pneumonia [Fatal]

NARRATIVE: CASE EVENT DATE: 20210617
